FAERS Safety Report 7740535-7 (Version None)
Quarter: 2011Q3

REPORT INFORMATION
  Report Type: 
  Country: None (occurrence: None)
  Receive Date: 20110909
  Receipt Date: 20110907
  Transmission Date: 20111222
  Serious: Yes (Hospitalization, Other)
  Sender: FDA-Public Use
  Company Number: BE-PFIZER INC-2011178028

PATIENT
  Age: 77 Year
  Sex: Male
  Weight: 76 kg

DRUGS (9)
  1. DYTAC [Concomitant]
     Indication: HYPERTENSION
     Dosage: 50 MG, 1X/DAY
  2. GLURENORM ^BOEHRINGER^ [Concomitant]
     Indication: DIABETES MELLITUS
     Dosage: UNK
  3. BUMETANIDE [Concomitant]
     Indication: HYPERTENSION
     Dosage: 1 MG, 1X/DAY
  4. REDOMEX [Concomitant]
     Indication: SLEEP DISORDER
     Dosage: 10 MG, 1X/DAY
  5. NOVOMIX [Concomitant]
     Indication: DIABETES MELLITUS
     Dosage: UNK
  6. ETANERCEPT [Suspect]
     Indication: RHEUMATOID ARTHRITIS
     Dosage: 50 MG, WEEKLY
     Route: 058
     Dates: start: 20071026, end: 20110218
  7. TRAMADOL [Concomitant]
     Indication: ARTHRALGIA
     Dosage: 100 MG, 1X/DAY
  8. PANTOPRAZOLE [Concomitant]
     Indication: GASTRITIS
     Dosage: 20 MG, 1X/DAY
  9. MEDROL [Suspect]
     Indication: RHEUMATOID ARTHRITIS
     Dosage: 4 MG, 1X/DAY

REACTIONS (1)
  - CELLULITIS [None]
